FAERS Safety Report 8926127 (Version 2)
Quarter: 2013Q1

REPORT INFORMATION
  Report Type: Spontaneous
  Country: US (occurrence: US)
  Receive Date: 20121126
  Receipt Date: 20130123
  Transmission Date: 20140127
  Serious: Yes (Other)
  Sender: FDA-Public Use
  Company Number: US-JNJFOC-20121108309

PATIENT
  Age: 41 None
  Sex: Female
  Weight: 49.9 kg

DRUGS (3)
  1. DURAGESIC [Suspect]
     Indication: PAIN
     Route: 062
  2. DURAGESIC [Suspect]
     Indication: PAIN
     Route: 062
  3. ALPRAZOLAM [Concomitant]
     Indication: ANXIETY
     Route: 065
     Dates: start: 20121102

REACTIONS (6)
  - Nonspecific reaction [Recovered/Resolved]
  - Feeling abnormal [Recovered/Resolved]
  - Dysstasia [Recovered/Resolved]
  - Product packaging issue [Unknown]
  - Somnolence [Recovered/Resolved]
  - Balance disorder [Recovered/Resolved]
